FAERS Safety Report 8757054 (Version 1)
Quarter: 2012Q4

REPORT INFORMATION
  Report Type: 
  Country: US (occurrence: US)
  Receive Date: 20120828
  Receipt Date: 20120828
  Transmission Date: 20130627
  Serious: Yes (Other)
  Sender: FDA-Public Use
  Company Number: US-TEVA-296400USA

PATIENT
  Sex: Female

DRUGS (4)
  1. METOCLOPRAMIDE [Suspect]
     Indication: NAUSEA
  2. METOCLOPRAMIDE [Suspect]
     Indication: IMPAIRED GASTRIC EMPTYING
  3. METOCLOPRAMIDE [Suspect]
     Indication: NAUSEA
  4. METOCLOPRAMIDE [Suspect]
     Indication: IMPAIRED GASTRIC EMPTYING

REACTIONS (7)
  - Tardive dyskinesia [Unknown]
  - Depression [Unknown]
  - Anxiety [Unknown]
  - Hyperventilation [Unknown]
  - Insomnia [Unknown]
  - Restlessness [Unknown]
  - Tearfulness [Unknown]
